FAERS Safety Report 21626273 (Version 1)
Quarter: 2022Q4

REPORT INFORMATION
  Report Type: Spontaneous
  Country: US (occurrence: None)
  Receive Date: 20221122
  Receipt Date: 20221122
  Transmission Date: 20230113
  Serious: No
  Sender: FDA-Public Use
  Company Number: US-ROCHE-3010540

PATIENT
  Sex: Male
  Weight: 100.79 kg

DRUGS (3)
  1. LUCENTIS [Suspect]
     Active Substance: RANIBIZUMAB
     Indication: Diabetic retinopathy
     Route: 050
  2. LUCENTIS [Suspect]
     Active Substance: RANIBIZUMAB
  3. LUCENTIS [Suspect]
     Active Substance: RANIBIZUMAB

REACTIONS (4)
  - Cataract [Not Recovered/Not Resolved]
  - Swelling [Not Recovered/Not Resolved]
  - Scar [Unknown]
  - Laser therapy [Unknown]

NARRATIVE: CASE EVENT DATE: 20200101
